FAERS Safety Report 9231712 (Version 2)
Quarter: 2013Q3

REPORT INFORMATION
  Report Type: Spontaneous
  Country: US (occurrence: US)
  Receive Date: 20130415
  Receipt Date: 20130709
  Transmission Date: 20140515
  Serious: Yes (Hospitalization, Other)
  Sender: FDA-Public Use
  Company Number: US-PFIZER INC-2013112196

PATIENT
  Age: 56 Year
  Sex: Male
  Weight: 78.99 kg

DRUGS (3)
  1. BENEFIX [Suspect]
     Indication: FACTOR IX DEFICIENCY
     Dosage: 85 IU/KG, WEEKLY (2X/WEEK)
  2. BENEFIX [Suspect]
     Dosage: 60 IU/KG, WEEKLY (2 TIMES PER WEEK PREVENTATIVE USE)
  3. BENEFIX [Suspect]
     Dosage: 30 IU/KG, AS NEEDED (ON DEMAND)

REACTIONS (4)
  - Disease complication [Unknown]
  - Haemorrhage [Unknown]
  - Joint injury [Unknown]
  - Off label use [Unknown]
